FAERS Safety Report 4831086-8 (Version None)
Quarter: 2005Q4

REPORT INFORMATION
  Report Type: 
  Country: None (occurrence: None)
  Receive Date: 20051118
  Receipt Date: 20051108
  Transmission Date: 20060501
  Serious: Yes (Hospitalization)
  Sender: FDA-Public Use
  Company Number: JP-ABBOTT-05P-087-0316755-00

PATIENT
  Age: 75 Year
  Sex: Male

DRUGS (1)
  1. LIPIDIL [Suspect]
     Indication: HYPERLIPIDAEMIA
     Route: 048
     Dates: end: 20050903

REACTIONS (3)
  - CHOLANGITIS [None]
  - FAECES PALE [None]
  - PYREXIA [None]
